FAERS Safety Report 9006582 (Version 2)
Quarter: 2014Q4

REPORT INFORMATION
  Report Type: Spontaneous
  Country: US (occurrence: None)
  Receive Date: 20120515
  Receipt Date: 20141030
  Transmission Date: 20150529
  Serious: Yes (Other)
  Sender: FDA-Public Use
  Company Number: PHEH2010US03155

PATIENT
  Age: 58 Year
  Sex: Female

DRUGS (1)
  1. ZOMETA [Suspect]
     Active Substance: ZOLEDRONIC ACID
     Indication: METASTASES TO BONE
     Dosage: 4 MG Q4WKS, INTRAVENOUS
     Route: 042
     Dates: start: 20021115, end: 200508

REACTIONS (3)
  - Musculoskeletal chest pain [None]
  - Plasmacytoma [None]
  - Oesophageal pain [None]

NARRATIVE: CASE EVENT DATE: 200304
